FAERS Safety Report 17696349 (Version 2)
Quarter: 2020Q4

REPORT INFORMATION
  Report Type: Spontaneous
  Country: US (occurrence: US)
  Receive Date: 20200423
  Receipt Date: 20201025
  Transmission Date: 20210113
  Serious: Yes (Other)
  Sender: FDA-Public Use
  Company Number: US-NAPPMUNDI-USA-2020-0150449

PATIENT
  Sex: Female

DRUGS (2)
  1. OXYFAST [Suspect]
     Active Substance: OXYCODONE
     Indication: PRODUCT USED FOR UNKNOWN INDICATION
     Route: 048
  2. OXYCONTIN [Suspect]
     Active Substance: OXYCODONE HYDROCHLORIDE
     Indication: PRODUCT USED FOR UNKNOWN INDICATION
     Dosage: 20 MG, Q12H
     Route: 048
     Dates: start: 200403, end: 201708

REACTIONS (3)
  - Drug dependence [Unknown]
  - Economic problem [Unknown]
  - Substance use disorder [Unknown]

NARRATIVE: CASE EVENT DATE: 2005
